FAERS Safety Report 7094234-8 (Version None)
Quarter: 2010Q4

REPORT INFORMATION
  Report Type: 
  Country: None (occurrence: None)
  Receive Date: 20101102
  Receipt Date: 20101021
  Transmission Date: 20110411
  Serious: Yes (Hospitalization)
  Sender: FDA-Public Use
  Company Number: 2010-3720

PATIENT
  Age: 67 Year
  Sex: Female

DRUGS (1)
  1. APO-GO AMPOULES (APO-GO) (APOMORPHINE HYDROCHLORIDE) (APOMORPHINE HYDR [Suspect]
     Indication: PRODUCT USED FOR UNKNOWN INDICATION
     Dosage: (CONTINUOUS INJECTION FOR 24HRS/DAY),SUBCUTANEOUS
     Route: 058
     Dates: start: 20100816

REACTIONS (3)
  - ABDOMINAL WALL HAEMATOMA [None]
  - ABSCESS [None]
  - INJECTION SITE INFLAMMATION [None]
